FAERS Safety Report 19467239 (Version 1)
Quarter: 2021Q2

REPORT INFORMATION
  Report Type: Spontaneous
  Country: US (occurrence: US)
  Receive Date: 20210625
  Receipt Date: 20210625
  Transmission Date: 20210717
  Serious: Yes (Other)
  Sender: FDA-Public Use
  Company Number: None

PATIENT
  Age: 73 Year
  Sex: Female
  Weight: 84.1 kg

DRUGS (19)
  1. ZETIA 30MG ONCE WEEKLY [Concomitant]
  2. ROSUVASTATIN QD [Concomitant]
  3. AMLODIPINE BESY?BENAZAPRIL 5?10MCG QD [Concomitant]
  4. ALPRAZOLAM 0.25MG BID [Concomitant]
  5. TORSEMIDE 50MG QD [Concomitant]
  6. MINOCIN 1 CAPSULE THREE TIMES WEEKLY [Concomitant]
  7. SERTRALINE 200MG QD [Concomitant]
  8. ABILIFY [Concomitant]
     Active Substance: ARIPIPRAZOLE
  9. ALDACTAZIDE 50?50MG BID [Concomitant]
  10. PROTONIX 40MG QD [Concomitant]
  11. TADALAFIL 40MG QD [Concomitant]
  12. MINOCYCLINE 100MG THREE TIMES WEELY [Concomitant]
  13. OPSUMIT [Concomitant]
     Active Substance: MACITENTAN
  14. REPATHA 140MG SQ TWICE MONTHLY [Concomitant]
  15. INFED [Suspect]
     Active Substance: IRON DEXTRAN
     Indication: IRON DEFICIENCY ANAEMIA
     Dosage: ?          OTHER FREQUENCY:ONCE;?
     Route: 041
     Dates: start: 20210527, end: 20210527
  16. UPTRAVI 600MCG BID [Concomitant]
  17. CALTRATE [Concomitant]
     Active Substance: CALCIUM CARBONATE
  18. GLUCOSAMINE QD [Concomitant]
  19. VITMAIN E 800MG QD [Concomitant]

REACTIONS (8)
  - Erythema [None]
  - Unresponsive to stimuli [None]
  - Oxygen saturation decreased [None]
  - Infusion related reaction [None]
  - Vomiting [None]
  - Dizziness [None]
  - Chest pain [None]
  - Dyspnoea [None]

NARRATIVE: CASE EVENT DATE: 20210527
